FAERS Safety Report 7726162-6 (Version None)
Quarter: 2011Q3

REPORT INFORMATION
  Report Type: 
  Country: None (occurrence: None)
  Receive Date: 20110831
  Receipt Date: 20110826
  Transmission Date: 20111222
  Serious: Yes (Life-Threatening, Hospitalization)
  Sender: FDA-Public Use
  Company Number: 121061-1

PATIENT
  Age: 61 Year
  Sex: Male
  Weight: 92.5338 kg

DRUGS (8)
  1. VELCADE [Concomitant]
  2. KYTRIL [Concomitant]
  3. AREDIA [Concomitant]
  4. DECADRON [Concomitant]
  5. PHENERGAN HCL [Concomitant]
  6. PEPCID [Concomitant]
  7. ADRIAMYCIN PFS [Suspect]
     Indication: MULTIPLE MYELOMA
     Dosage: 20MG D1 + D8 Q3 WEEKS IV
     Route: 042
     Dates: start: 20110307, end: 20110425
  8. ALOXI [Concomitant]

REACTIONS (2)
  - RENAL FAILURE ACUTE [None]
  - HYPERGLYCAEMIA [None]
